FAERS Safety Report 4396212-6 (Version None)
Quarter: 2004Q3

REPORT INFORMATION
  Report Type: 
  Country: None (occurrence: None)
  Receive Date: 20040708
  Receipt Date: 20040623
  Transmission Date: 20050211
  Serious: No
  Sender: FDA-Public Use
  Company Number: 2004-CN-00246CN

PATIENT

DRUGS (2)
  1. SPIRIVA [Suspect]
     Indication: CHRONIC OBSTRUCTIVE AIRWAYS DISEASE
     Dosage: NR (18 MCG); IH
     Route: 055
  2. ATROVENT [Concomitant]

REACTIONS (1)
  - OXYGEN SATURATION DECREASED [None]
